FAERS Safety Report 10200405 (Version 2)
Quarter: 2014Q2

REPORT INFORMATION
  Report Type: Spontaneous
  Country: IT (occurrence: IT)
  Receive Date: 20140528
  Receipt Date: 20140528
  Transmission Date: 20141212
  Serious: No
  Sender: FDA-Public Use
  Company Number: IT-ROCHE-1212570

PATIENT
  Age: 69 Year
  Sex: Female
  Weight: 52 kg

DRUGS (2)
  1. VEMURAFENIB [Suspect]
     Indication: METASTATIC MALIGNANT MELANOMA
     Route: 048
     Dates: start: 20130114, end: 20130123
  2. VEMURAFENIB [Suspect]
     Route: 048
     Dates: start: 20130201

REACTIONS (4)
  - Rash erythematous [Recovering/Resolving]
  - Rash [Recovered/Resolved]
  - Back pain [Not Recovered/Not Resolved]
  - Erythema [Unknown]
